FAERS Safety Report 5017756-X (Version None)
Quarter: 2006Q2

REPORT INFORMATION
  Report Type: 
  Country: None (occurrence: None)
  Receive Date: 20060530
  Receipt Date: 20050503
  Transmission Date: 20061013
  Serious: Yes (Life-Threatening, Hospitalization)
  Sender: FDA-Public Use
  Company Number: 2005069637

PATIENT
  Age: 60 Year
  Sex: Female
  Weight: 94 kg

DRUGS (10)
  1. LYRICA [Suspect]
     Indication: PAIN
     Dosage: 300 MG (150 MG, 2 IN 1 D), ORAL
     Route: 048
     Dates: start: 20050218, end: 20050222
  2. ENALAPRI MALEATE (ENALAPRIL MALEATE) [Concomitant]
  3. FUROSEMIDE [Concomitant]
  4. ALLOPURINOL [Concomitant]
  5. AKTIFERRIN (FERROUS SULFATE, SERINE) [Concomitant]
  6. TRAMADOL HCL [Concomitant]
  7. ISOPHANE INSULIN [Concomitant]
  8. INSULIN ASPART (INSULIN ASPART) [Concomitant]
  9. AMITRIPTYLINE HCL [Concomitant]
  10. XIPAMIDE (XIPAMIDE) [Concomitant]

REACTIONS (7)
  - DEHYDRATION [None]
  - DYSARTHRIA [None]
  - MENTAL DISORDER DUE TO A GENERAL MEDICAL CONDITION [None]
  - OBSTRUCTIVE AIRWAYS DISORDER [None]
  - OVERDOSE [None]
  - RENAL FAILURE ACUTE [None]
  - RHABDOMYOLYSIS [None]
